FAERS Safety Report 24781650 (Version 1)
Quarter: 2024Q4

REPORT INFORMATION
  Report Type: Spontaneous
  Country: CN (occurrence: CN)
  Receive Date: 20241227
  Receipt Date: 20241227
  Transmission Date: 20250115
  Serious: Yes (Other)
  Sender: ROCHE
  Company Number: CN-ROCHE-10000165865

PATIENT
  Age: 71 Year
  Sex: Male

DRUGS (3)
  1. BEVACIZUMAB [Suspect]
     Active Substance: BEVACIZUMAB
     Indication: Colon cancer metastatic
     Route: 042
     Dates: start: 20240722, end: 20240722
  2. CAPECITABINE [Suspect]
     Active Substance: CAPECITABINE
     Indication: Colon cancer metastatic
     Route: 048
     Dates: start: 20240722, end: 20240805
  3. IRINOTECAN HYDROCHLORIDE [Suspect]
     Active Substance: IRINOTECAN HYDROCHLORIDE
     Indication: Colon cancer metastatic
     Route: 042
     Dates: start: 20240722, end: 20240722

REACTIONS (2)
  - Hepatic function abnormal [Recovering/Resolving]
  - Platelet count decreased [Unknown]

NARRATIVE: CASE EVENT DATE: 20241217
